FAERS Safety Report 5801558-8 (Version None)
Quarter: 2008Q3

REPORT INFORMATION
  Report Type: 
  Country: None (occurrence: None)
  Receive Date: 20080707
  Receipt Date: 20080626
  Transmission Date: 20090109
  Serious: Yes (Other)
  Sender: FDA-Public Use
  Company Number: DE-BRISTOL-MYERS SQUIBB COMPANY-14250559

PATIENT

DRUGS (1)
  1. ABILIFY [Suspect]

REACTIONS (1)
  - MANIA [None]
